FAERS Safety Report 6033325-7 (Version None)
Quarter: 2009Q1

REPORT INFORMATION
  Report Type: 
  Country: None (occurrence: None)
  Receive Date: 20090109
  Receipt Date: 20090108
  Transmission Date: 20090719
  Serious: Yes (Life-Threatening, Hospitalization)
  Sender: FDA-Public Use
  Company Number: US-ASTRAZENECA-2008UW27748

PATIENT
  Age: 22724 Day
  Sex: Female
  Weight: 79.4 kg

DRUGS (2)
  1. ARIMIDEX [Suspect]
     Indication: BREAST CANCER METASTATIC
     Route: 048
     Dates: start: 20081009
  2. BEVACIZUMAB [Suspect]
     Indication: BREAST CANCER METASTATIC
     Dosage: 10 MG/KG = 773 MG
     Dates: start: 20081009

REACTIONS (10)
  - ALANINE AMINOTRANSFERASE INCREASED [None]
  - BLOOD ALKALINE PHOSPHATASE INCREASED [None]
  - DECREASED APPETITE [None]
  - FLUID RETENTION [None]
  - HEPATIC FUNCTION ABNORMAL [None]
  - INCREASED UPPER AIRWAY SECRETION [None]
  - PYREXIA [None]
  - RENAL IMPAIRMENT [None]
  - RESPIRATORY DISTRESS [None]
  - SWELLING FACE [None]
